FAERS Safety Report 4273665-5 (Version None)
Quarter: 2004Q1

REPORT INFORMATION
  Report Type: 
  Country: None (occurrence: None)
  Receive Date: 20040116
  Receipt Date: 20040116
  Transmission Date: 20041129
  Serious: Yes (Other)
  Sender: FDA-Public Use
  Company Number: None

PATIENT
  Sex: Male
  Weight: 74.8435 kg

DRUGS (2)
  1. ZOLOFT [Suspect]
     Indication: ANXIETY
     Dosage: 200 MG ONCE PER D ORAL
     Route: 048
     Dates: start: 19970701, end: 20040112
  2. ZOLOFT [Suspect]
     Indication: DEPRESSION
     Dosage: 200 MG ONCE PER D ORAL
     Route: 048
     Dates: start: 19970701, end: 20040112

REACTIONS (4)
  - ABDOMINAL PAIN UPPER [None]
  - DRUG WITHDRAWAL SYNDROME [None]
  - MUSCLE RIGIDITY [None]
  - MUSCLE SPASMS [None]
